FAERS Safety Report 8887407 (Version 1)
Quarter: 2012Q4

REPORT INFORMATION
  Report Type: Spontaneous
  Country: US (occurrence: None)
  Receive Date: 20121101
  Receipt Date: 20121101
  Transmission Date: 20130627
  Serious: Yes (Hospitalization)
  Sender: FDA-Public Use
  Company Number: None

PATIENT
  Age: 72 Year
  Sex: Female
  Weight: 88.8 kg

DRUGS (9)
  1. ASA [Suspect]
     Dosage: 162MG DAILY PO
CHRONIC
     Route: 048
  2. ALEVE [Suspect]
     Dosage: TWICE WEEKLY PO
CHRONIC
     Route: 048
  3. PROPANOLOL [Concomitant]
  4. GLYBURIDE/METFORMIN [Concomitant]
  5. ACIPHEX [Concomitant]
  6. NITROFURANTOIN [Concomitant]
  7. FLOMAX [Concomitant]
  8. LEVEMIR [Concomitant]
  9. LORAZEPAM [Concomitant]

REACTIONS (5)
  - Barrett^s oesophagus [None]
  - Hiatus hernia [None]
  - Gastric ulcer [None]
  - Anaemia [None]
  - Occult blood positive [None]
